FAERS Safety Report 8457793-6 (Version None)
Quarter: 2012Q2

REPORT INFORMATION
  Report Type: 
  Country: None (occurrence: None)
  Receive Date: 20120323
  Receipt Date: 20111207
  Transmission Date: 20120825
  Serious: Yes (Hospitalization)
  Sender: FDA-Public Use
  Company Number: 163-21880-11081540

PATIENT
  Age: 59 Year
  Sex: Male

DRUGS (6)
  1. REVLIMID [Suspect]
     Indication: AMYLOIDOSIS
     Dosage: 15 MG, 1 IN 1 D, PO
     Route: 048
     Dates: start: 20110621
  2. NEURONTIN [Concomitant]
  3. VITAMIN B12 [Concomitant]
  4. VERAPAMIL [Concomitant]
  5. ASPIRIN [Concomitant]
  6. TOPAMAX [Concomitant]

REACTIONS (1)
  - PULMONARY EMBOLISM [None]
